FAERS Safety Report 22394096 (Version 1)
Quarter: 2023Q2

REPORT INFORMATION
  Report Type: Spontaneous
  Country: US (occurrence: None)
  Receive Date: 20230530
  Receipt Date: 20230530
  Transmission Date: 20230721
  Serious: Yes (Hospitalization)
  Sender: FDA-Public Use
  Company Number: None

PATIENT
  Age: 49 Year
  Sex: Female

DRUGS (2)
  1. AMBRISENTAN [Suspect]
     Active Substance: AMBRISENTAN
     Dosage: FREQUENCY : DAILY;?
     Route: 048
  2. LETAIRIS [Suspect]
     Active Substance: AMBRISENTAN

REACTIONS (4)
  - Cardiac failure congestive [None]
  - Therapy interrupted [None]
  - Joint swelling [None]
  - Nasal congestion [None]

NARRATIVE: CASE EVENT DATE: 20230530
